FAERS Safety Report 6760331-7 (Version None)
Quarter: 2010Q2

REPORT INFORMATION
  Report Type: 
  Country: None (occurrence: None)
  Receive Date: 20100608
  Receipt Date: 20100531
  Transmission Date: 20101027
  Serious: Yes (Life-Threatening, Hospitalization)
  Sender: FDA-Public Use
  Company Number: JP-JNJFOC-20100508037

PATIENT
  Sex: Female

DRUGS (2)
  1. LEVOFLOXACIN [Suspect]
     Indication: CYSTITIS
     Route: 048
  2. IMIDAFENACIN [Concomitant]
     Indication: HYPERTONIC BLADDER
     Dosage: 0.1 MG- 2 IN 1 DAY
     Route: 048

REACTIONS (6)
  - ANAPHYLACTOID REACTION [None]
  - DECREASED APPETITE [None]
  - DIZZINESS [None]
  - MALAISE [None]
  - NAUSEA [None]
  - VOMITING [None]
